FAERS Safety Report 15113565 (Version 5)
Quarter: 2019Q4

REPORT INFORMATION
  Report Type: Report from Study
  Country: JP (occurrence: JP)
  Receive Date: 20180706
  Receipt Date: 20191211
  Transmission Date: 20200122
  Serious: Yes (Death, Hospitalization)
  Sender: FDA-Public Use
  Company Number: JP-ROCHE-2147631

PATIENT
  Age: 68 Year
  Sex: Female
  Weight: 46 kg

DRUGS (6)
  1. GLUCOSE;POTASSIUM CHLORIDE;SODIUM CHLORIDE;SODIUM LACTATE [Concomitant]
     Route: 042
     Dates: start: 20180608, end: 20180610
  2. CAPECITABINE. [Suspect]
     Active Substance: CAPECITABINE
     Indication: GALLBLADDER CANCER
     Route: 048
     Dates: start: 20180518, end: 20180531
  3. CAPECITABINE. [Suspect]
     Active Substance: CAPECITABINE
     Route: 048
     Dates: start: 20180618, end: 20180625
  4. BLINDED VARLITINIB [Suspect]
     Active Substance: VARLITINIB
     Indication: GALLBLADDER CANCER
     Route: 048
     Dates: start: 20180518, end: 20180607
  5. BLINDED VARLITINIB [Suspect]
     Active Substance: VARLITINIB
     Route: 048
     Dates: start: 20180618, end: 20180625
  6. SOLULACT D [Concomitant]
     Route: 042
     Dates: start: 20180608, end: 20180608

REACTIONS (2)
  - Disease progression [Fatal]
  - Haemobilia [Recovered/Resolved]

NARRATIVE: CASE EVENT DATE: 20180608
